FAERS Safety Report 7967680-5 (Version None)
Quarter: 2011Q4

REPORT INFORMATION
  Report Type: 
  Country: None (occurrence: None)
  Receive Date: 20111209
  Receipt Date: 20111129
  Transmission Date: 20120403
  Serious: Yes (Hospitalization)
  Sender: FDA-Public Use
  Company Number: US-BAYER-2011-061747

PATIENT
  Age: 32 Year
  Sex: Female
  Weight: 73 kg

DRUGS (7)
  1. YAZ [Suspect]
     Indication: CONTRACEPTION
     Dosage: UNK
     Dates: start: 20090601
  2. DROSPIRENONE AND ETHINYL ESTRADIOL [Suspect]
     Indication: CONTRACEPTION
     Dosage: UNK
     Dates: start: 20090714, end: 20091003
  3. METRONIDAZOLE [Concomitant]
     Dosage: 500 MG, BID
     Route: 048
     Dates: start: 20090923, end: 20090930
  4. ONDANSETRON HYDROCHLORIDE [Concomitant]
     Dosage: 2 MG, UNK
     Route: 048
  5. IRON [IRON] [Concomitant]
     Route: 048
  6. PREVACID [Concomitant]
     Route: 048
  7. MULTI-VITAMIN [Concomitant]
     Route: 048

REACTIONS (9)
  - DEEP VEIN THROMBOSIS [None]
  - OEDEMA PERIPHERAL [None]
  - ERYTHEMA [None]
  - PAIN [None]
  - EMOTIONAL DISTRESS [None]
  - ANXIETY [None]
  - PAIN IN EXTREMITY [None]
  - STRESS [None]
  - INJURY [None]
